FAERS Safety Report 10026705 (Version 1)
Quarter: 2014Q1

REPORT INFORMATION
  Report Type: Spontaneous
  Country: JP (occurrence: JP)
  Receive Date: 20140321
  Receipt Date: 20140321
  Transmission Date: 20141002
  Serious: Yes (Death)
  Sender: FDA-Public Use
  Company Number: JP-AMGEN-JPNSP2014019339

PATIENT
  Age: 87 Year
  Sex: Male
  Weight: 56 kg

DRUGS (11)
  1. VECTIBIX [Suspect]
     Indication: COLON CANCER
     Dosage: 340 MG, Q2WK
     Route: 041
     Dates: start: 20140127, end: 20140224
  2. ECARD [Concomitant]
     Indication: HYPERTENSION
     Dosage: 1 DF, QD
     Route: 048
     Dates: end: 20140310
  3. BARACLUDE [Concomitant]
     Indication: CHRONIC HEPATITIS B
     Dosage: 0.5 MG, QD
     Route: 048
     Dates: end: 20140310
  4. JANUVIA [Concomitant]
     Indication: TYPE 2 DIABETES MELLITUS
     Dosage: 50 MG, QD
     Route: 048
     Dates: end: 20140310
  5. AMARYL [Concomitant]
     Indication: TYPE 2 DIABETES MELLITUS
     Dosage: 0.5 MG, QD
     Route: 048
     Dates: end: 20140310
  6. ITOROL [Concomitant]
     Indication: ANGINA PECTORIS
     Dosage: 20 MG, BID
     Route: 048
     Dates: end: 20140310
  7. ALFAROL [Concomitant]
     Indication: OSTEOPOROSIS
     Dosage: 0.5 MUG, QD
     Route: 048
     Dates: end: 20140310
  8. LENDORMIN [Concomitant]
     Indication: INSOMNIA
     Dosage: 0.25 MG, QD
     Route: 048
     Dates: end: 20140310
  9. OXALIPLATIN [Concomitant]
     Indication: COLON CANCER
     Dosage: UNK UNK, Q2WK
     Route: 041
     Dates: start: 20140127, end: 20140224
  10. FLUOROURACIL [Concomitant]
     Indication: COLON CANCER
     Dosage: UNK UNK, UNK
     Route: 042
     Dates: start: 20140127, end: 20140224
  11. CALCIUM LEVOFOLINATE [Concomitant]
     Indication: COLON CANCER
     Dosage: UNK UNK, UNK
     Route: 041
     Dates: start: 20140127, end: 20140224

REACTIONS (2)
  - Sudden death [Fatal]
  - Palmar-plantar erythrodysaesthesia syndrome [Unknown]
